FAERS Safety Report 4975077-5 (Version None)
Quarter: 2006Q2

REPORT INFORMATION
  Report Type: 
  Country: None (occurrence: None)
  Receive Date: 20060418
  Receipt Date: 20060405
  Transmission Date: 20061013
  Serious: Yes (Other)
  Sender: FDA-Public Use
  Company Number: PHNU2006DE01594

PATIENT
  Age: 54 Year
  Sex: Female
  Weight: 87 kg

DRUGS (13)
  1. VOLTAREN [Suspect]
     Indication: PAIN IN EXTREMITY
     Dosage: 1 DF, BID
     Route: 048
     Dates: start: 20050718, end: 20050722
  2. DICLO [Suspect]
     Indication: PAIN IN EXTREMITY
     Dosage: 1 DF, BID
     Route: 048
     Dates: start: 20050725, end: 20050727
  3. PENICILLIN G [Suspect]
     Indication: THROMBOPHLEBITIS
     Dosage: ONCE DAILY
     Route: 042
     Dates: start: 20050725, end: 20050727
  4. NEXIUM [Concomitant]
     Dosage: 20 MG, QD
     Route: 048
     Dates: start: 20050725, end: 20050725
  5. NEXIUM [Concomitant]
     Dosage: 20 MG, BID
     Route: 048
     Dates: start: 20050726, end: 20050726
  6. NOVALGIN [Concomitant]
     Dosage: 500 ML, QD
     Route: 042
     Dates: start: 20050725, end: 20050725
  7. INNOHEP [Concomitant]
     Dosage: 0.35 ML, QD
     Route: 058
     Dates: start: 20050725, end: 20050725
  8. IMODIUM [Concomitant]
     Dosage: 2 DF, BID
     Route: 048
     Dates: start: 20050705, end: 20050707
  9. BERBERIL [Concomitant]
     Dosage: 1 DF, QD
     Route: 048
     Dates: start: 19850101
  10. ELOTRANS [Concomitant]
     Dosage: 1 DF, QD
     Route: 048
     Dates: start: 20050707, end: 20050709
  11. VAGIFEM [Concomitant]
     Dates: start: 19980101, end: 20050720
  12. IBUPROFEN [Concomitant]
     Dosage: 1 DF, BID
     Route: 048
     Dates: start: 20050710, end: 20050718
  13. TOGAL TABLET [Concomitant]
     Dates: start: 20050719, end: 20050720

REACTIONS (4)
  - BLOOD BILIRUBIN INCREASED [None]
  - BLOOD LACTATE DEHYDROGENASE INCREASED [None]
  - COOMBS DIRECT TEST POSITIVE [None]
  - HAEMOLYTIC ANAEMIA [None]
